FAERS Safety Report 22084883 (Version 1)
Quarter: 2023Q1

REPORT INFORMATION
  Report Type: Spontaneous
  Country: US (occurrence: None)
  Receive Date: 20230310
  Receipt Date: 20230310
  Transmission Date: 20230418
  Serious: Yes (Hospitalization)
  Sender: FDA-Public Use
  Company Number: None

PATIENT
  Age: 49 Year
  Sex: Male
  Weight: 92.25 kg

DRUGS (2)
  1. BELATACEPT [Suspect]
     Active Substance: BELATACEPT
     Indication: Renal transplant
     Dosage: OTHER FREQUENCY : EVERY 28 DAYS;?
     Route: 042
     Dates: start: 20221115
  2. everolimus 3mg BID [Concomitant]
     Dates: start: 20230213, end: 20230306

REACTIONS (5)
  - Weight increased [None]
  - Pulmonary hypertension [None]
  - Aortic valve incompetence [None]
  - Mitral valve thickening [None]
  - Left atrial dilatation [None]

NARRATIVE: CASE EVENT DATE: 20230308
